FAERS Safety Report 7279683-7 (Version None)
Quarter: 2011Q1

REPORT INFORMATION
  Report Type: 
  Country: None (occurrence: None)
  Receive Date: 20110203
  Receipt Date: 20110203
  Transmission Date: 20110831
  Serious: Yes (Other)
  Sender: FDA-Public Use
  Company Number: None

PATIENT
  Age: 45 Year
  Sex: Female
  Weight: 72.5755 kg

DRUGS (1)
  1. ROLAIDS CHEWABLE TAB [Suspect]
     Indication: DYSPEPSIA
     Dosage: TWICE DAILY PO
     Route: 048
     Dates: start: 20060101, end: 20110127

REACTIONS (3)
  - RASH [None]
  - RASH PRURITIC [None]
  - BURNING SENSATION [None]
